FAERS Safety Report 8244298-0 (Version None)
Quarter: 2012Q1

REPORT INFORMATION
  Report Type: 
  Country: None (occurrence: None)
  Receive Date: 20120329
  Receipt Date: 20120323
  Transmission Date: 20120608
  Serious: Yes (Other)
  Sender: FDA-Public Use
  Company Number: BR-ABBOTT-12P-020-0918150-00

PATIENT
  Sex: Female

DRUGS (5)
  1. CLOBAZAM [Concomitant]
     Indication: SLEEP DISORDER THERAPY
     Route: 048
  2. CLOBAZAM [Concomitant]
     Route: 048
  3. DEPAKOTE [Suspect]
     Indication: SYNCOPE
     Route: 048
     Dates: start: 20110701, end: 20120301
  4. TRILEPTAL [Suspect]
     Indication: EPILEPSY
  5. DEPAKENE [Suspect]
     Indication: SYNCOPE
     Route: 048

REACTIONS (4)
  - DYSPNOEA [None]
  - SOMNOLENCE [None]
  - SYNCOPE [None]
  - CHEST PAIN [None]
